FAERS Safety Report 25347523 (Version 1)
Quarter: 2025Q2

REPORT INFORMATION
  Report Type: Spontaneous
  Country: US (occurrence: None)
  Receive Date: 20250521
  Receipt Date: 20250521
  Transmission Date: 20250717
  Serious: No
  Sender: FDA-CTU
  Company Number: None

PATIENT

DRUGS (3)
  1. ALBA BOTANICA KIDS SPF 50 TROPICAL FRUIT [Suspect]
     Active Substance: AVOBENZONE\HOMOSALATE\OCTISALATE\OCTOCRYLENE
  2. OCTINOXATE\OCTOCRYLENE [Suspect]
     Active Substance: OCTINOXATE\OCTOCRYLENE
  3. FOOD PRODUCT, OTHER [Suspect]
     Active Substance: FOOD PRODUCT, OTHER

REACTIONS (3)
  - Product tampering [None]
  - Product expiration date issue [None]
  - Suspected product contamination [None]

NARRATIVE: CASE EVENT DATE: 20250509
